FAERS Safety Report 4557811-1 (Version None)
Quarter: 2005Q1

REPORT INFORMATION
  Report Type: 
  Country: None (occurrence: None)
  Receive Date: 20050121
  Receipt Date: 20050111
  Transmission Date: 20050727
  Serious: Yes (Hospitalization)
  Sender: FDA-Public Use
  Company Number: PHRM2005FR00531

PATIENT
  Age: 48 Year
  Sex: Female
  Weight: 108 kg

DRUGS (2)
  1. LAMISIL [Suspect]
     Route: 048
     Dates: start: 20030302, end: 20030401
  2. TENORETIC 100 [Suspect]
     Route: 048
     Dates: end: 20030401

REACTIONS (4)
  - CONDITION AGGRAVATED [None]
  - INFLAMMATION [None]
  - LEUKOCYTOSIS [None]
  - PSORIASIS [None]
